FAERS Safety Report 4450581-7 (Version None)
Quarter: 2004Q3

REPORT INFORMATION
  Report Type: 
  Country: None (occurrence: None)
  Receive Date: 20040913
  Receipt Date: 20040630
  Transmission Date: 20050211
  Serious: No
  Sender: FDA-Public Use
  Company Number: 2004-BP-05276BP(0)

PATIENT
  Age: 44 Year
  Sex: Female
  Weight: 70.3 kg

DRUGS (7)
  1. SPIRIVA [Suspect]
     Dosage: (18 MCG), IH
     Route: 055
     Dates: end: 20040617
  2. ADVAIR DISKUS 100/50 [Suspect]
  3. COMBIVENT [Concomitant]
  4. LEVAQUIN [Concomitant]
  5. DOXYCYCLINE [Concomitant]
  6. PREDNISONE [Concomitant]
  7. METHADONE HCL [Concomitant]

REACTIONS (1)
  - ORAL MUCOSAL BLISTERING [None]
